FAERS Safety Report 6130364-2 (Version None)
Quarter: 2009Q1

REPORT INFORMATION
  Report Type: 
  Country: None (occurrence: None)
  Receive Date: 20090324
  Receipt Date: 20090312
  Transmission Date: 20090719
  Serious: Yes (Hospitalization)
  Sender: FDA-Public Use
  Company Number: US-ELI_LILLY_AND_COMPANY-US200803003450

PATIENT
  Sex: Male
  Weight: 93.878 kg

DRUGS (5)
  1. ZYPREXA [Suspect]
     Dosage: 20 MG, UNK
     Dates: start: 19971101, end: 20080201
  2. ZYPREXA [Suspect]
     Dosage: 15 MG, UNK
     Dates: start: 20080201, end: 20080301
  3. ABILIFY [Concomitant]
     Dosage: 15 MG, UNK
     Dates: start: 20070401
  4. PAXIL [Concomitant]
     Dosage: 40 MG, UNK
     Dates: start: 19971101
  5. AMBIEN [Concomitant]
     Dosage: 10 MG, UNK

REACTIONS (2)
  - STENT PLACEMENT [None]
  - TYPE 2 DIABETES MELLITUS [None]
